FAERS Safety Report 5253812-9 (Version None)
Quarter: 2007Q1

REPORT INFORMATION
  Report Type: 
  Country: None (occurrence: None)
  Receive Date: 20070301
  Receipt Date: 20070119
  Transmission Date: 20070707
  Serious: Yes (Hospitalization)
  Sender: FDA-Public Use
  Company Number: CZ-ABBOTT-06P-217-0353452-00

PATIENT
  Sex: Male
  Weight: 91 kg

DRUGS (19)
  1. ZEMPLAR [Suspect]
     Indication: HYPERPARATHYROIDISM SECONDARY
     Route: 042
     Dates: start: 20060510
  2. EPOETIN ALFA [Concomitant]
     Indication: DRUG USE FOR UNKNOWN INDICATION
     Route: 058
  3. FUROSEMIDE [Concomitant]
     Indication: DRUG USE FOR UNKNOWN INDICATION
     Route: 048
  4. TELMISARTAN [Concomitant]
     Indication: DRUG USE FOR UNKNOWN INDICATION
     Route: 048
  5. MIRIL [Concomitant]
     Indication: MYOCARDIAL ISCHAEMIA
     Route: 048
  6. MIRIL [Concomitant]
     Indication: CORONARY ARTERY INSUFFICIENCY
  7. PREDUCTAL MR [Concomitant]
     Indication: DRUG USE FOR UNKNOWN INDICATION
     Route: 048
  8. SEVELAMER HYDROCHLORIDE [Concomitant]
     Indication: DRUG USE FOR UNKNOWN INDICATION
     Route: 048
  9. RILMENIDINE [Concomitant]
     Indication: DRUG USE FOR UNKNOWN INDICATION
     Route: 048
  10. METOPROLOL TARTRATE [Concomitant]
     Indication: MYOCARDIAL ISCHAEMIA
     Route: 048
  11. METOPROLOL TARTRATE [Concomitant]
     Indication: CORONARY ARTERY INSUFFICIENCY
  12. METHYLDOPA [Concomitant]
     Indication: DRUG USE FOR UNKNOWN INDICATION
     Route: 048
  13. ACETYLSALICYLIC ACID SRT [Concomitant]
     Indication: MYOCARDIAL ISCHAEMIA
     Route: 048
  14. ACETYLSALICYLIC ACID SRT [Concomitant]
     Indication: CORONARY ARTERY INSUFFICIENCY
  15. ACIDUM FOLICUM [Concomitant]
     Indication: DRUG USE FOR UNKNOWN INDICATION
     Route: 048
  16. OMEPROL [Concomitant]
     Indication: DRUG USE FOR UNKNOWN INDICATION
     Route: 048
  17. ALLOPURINOL SODIUM [Concomitant]
     Indication: MYOCARDIAL ISCHAEMIA
     Route: 048
  18. ALLOPURINOL SODIUM [Concomitant]
     Indication: CORONARY ARTERY INSUFFICIENCY
  19. OMEPRAZOLE [Concomitant]
     Indication: DRUG USE FOR UNKNOWN INDICATION
     Route: 048

REACTIONS (4)
  - CATHETER RELATED COMPLICATION [None]
  - CORONARY ARTERY INSUFFICIENCY [None]
  - MYOCARDIAL ISCHAEMIA [None]
  - OEDEMA PERIPHERAL [None]
